FAERS Safety Report 8583717-7 (Version None)
Quarter: 2012Q3

REPORT INFORMATION
  Report Type: 
  Country: None (occurrence: None)
  Receive Date: 20120809
  Receipt Date: 20120711
  Transmission Date: 20120928
  Serious: Yes (Other)
  Sender: FDA-Public Use
  Company Number: JP-009507513-2012SP021971

PATIENT

DRUGS (8)
  1. SEROQUEL [Interacting]
     Indication: GASTRITIS
     Dosage: 50 MG, QD
     Route: 048
     Dates: end: 20120421
  2. DONEPEZIL HCL [Concomitant]
     Indication: DEMENTIA
     Dosage: UPDATE(24MAY2012): INDICATION
     Route: 048
  3. SEROQUEL [Interacting]
     Indication: DELIRIUM
  4. MIRTAZAPINE [Suspect]
     Indication: DEPRESSION
     Dosage: 15 MG, QD
     Route: 048
     Dates: start: 20120413
  5. URSODIOL [Concomitant]
     Indication: LIVER DISORDER
     Dosage: UPDATE(24MAY2012): INDICATION AND DOSE
     Route: 048
  6. TRIAZOLAM [Concomitant]
     Indication: INSOMNIA
     Dosage: UPDATE(24MAY2012): INDICATION
     Route: 048
  7. MEXILETINE HYDROCHLORIDE [Concomitant]
     Indication: HYPOAESTHESIA
     Dosage: UPDATE(24MAY2012)
     Route: 048
     Dates: start: 20120416, end: 20120423
  8. RANITIDINE HYDROCHLORIDE [Concomitant]
     Indication: GASTRITIS
     Dosage: UPDATE(24MAY2012): INDICATION
     Route: 048

REACTIONS (3)
  - ASTHENIA [None]
  - TREMOR [None]
  - DRUG INTERACTION [None]
